FAERS Safety Report 4570567-1 (Version None)
Quarter: 2005Q1

REPORT INFORMATION
  Report Type: 
  Country: None (occurrence: None)
  Receive Date: 20050204
  Receipt Date: 20050124
  Transmission Date: 20050727
  Serious: Yes (Other)
  Sender: FDA-Public Use
  Company Number: US-GLAXOSMITHKLINE-A0542133A

PATIENT
  Age: 67 Year
  Sex: Female
  Weight: 61.4 kg

DRUGS (2)
  1. TARGET ORIGINAL [Suspect]
     Indication: SMOKING CESSATION THERAPY
     Route: 002
     Dates: start: 20040101
  2. NICORETTE [Suspect]
     Indication: SMOKING CESSATION THERAPY
     Route: 002
     Dates: start: 20030101

REACTIONS (5)
  - BLINDNESS UNILATERAL [None]
  - BLOOD HOMOCYSTEINE INCREASED [None]
  - DRUG ABUSER [None]
  - DYSPNOEA [None]
  - THROMBOSIS [None]
